FAERS Safety Report 10228088 (Version 1)
Quarter: 2014Q2

REPORT INFORMATION
  Report Type: Spontaneous
  Country: US (occurrence: US)
  Receive Date: 20140610
  Receipt Date: 20140610
  Transmission Date: 20141212
  Serious: Yes (Other)
  Sender: FDA-Public Use
  Company Number: US-BAYER-2014-082549

PATIENT
  Age: 35 Year
  Sex: Female
  Weight: 104.31 kg

DRUGS (2)
  1. YASMIN [Suspect]
     Indication: CONTRACEPTION
  2. IBUPROFEN [Concomitant]
     Indication: MIGRAINE
     Dosage: AS NEEDED

REACTIONS (1)
  - Thrombophlebitis superficial [None]
